FAERS Safety Report 10633157 (Version 2)
Quarter: 2014Q4

REPORT INFORMATION
  Report Type: Spontaneous
  Country: US (occurrence: US)
  Receive Date: 20141205
  Receipt Date: 20141205
  Transmission Date: 20150529
  Serious: Yes (Other)
  Sender: FDA-Public Use
  Company Number: US-BRISTOL-MYERS SQUIBB COMPANY-21517727

PATIENT
  Age: 80 Year
  Sex: Female

DRUGS (8)
  1. LISINOPRIL. [Concomitant]
     Active Substance: LISINOPRIL
  2. HYDROXYCHLOROQUINE [Concomitant]
     Active Substance: HYDROXYCHLOROQUINE
  3. ATENOLOL. [Concomitant]
     Active Substance: ATENOLOL
  4. PREDNISONE. [Concomitant]
     Active Substance: PREDNISONE
  5. SULFASALAZINE. [Concomitant]
     Active Substance: SULFASALAZINE
  6. ORENCIA [Suspect]
     Active Substance: ABATACEPT
     Indication: RHEUMATOID ARTHRITIS
     Route: 042
  7. DILZEM [Concomitant]
     Active Substance: DILTIAZEM
  8. FOLIC ACID. [Concomitant]
     Active Substance: FOLIC ACID

REACTIONS (1)
  - Small cell lung cancer [Unknown]

NARRATIVE: CASE EVENT DATE: 201312
